FAERS Safety Report 19091629 (Version 13)
Quarter: 2024Q1

REPORT INFORMATION
  Report Type: Spontaneous
  Country: CA (occurrence: CA)
  Receive Date: 20210405
  Receipt Date: 20240325
  Transmission Date: 20240409
  Serious: Yes (Hospitalization, Other)
  Sender: FDA-Public Use
  Company Number: CA-CELLTRION INC.-2020CA023708

PATIENT

DRUGS (13)
  1. INFLECTRA [Suspect]
     Active Substance: INFLIXIMAB-DYYB
     Indication: Colitis ulcerative
     Dosage: 500 MG, EVERY 8 WEEKS (EVERY 6 WEEKS)
     Route: 042
     Dates: start: 20200217
  2. INFLECTRA [Suspect]
     Active Substance: INFLIXIMAB-DYYB
     Dosage: 500 MG, EVERY 8 WEEKS
     Route: 042
     Dates: start: 20200608
  3. INFLECTRA [Suspect]
     Active Substance: INFLIXIMAB-DYYB
     Dosage: 500 MG, EVERY 6 WEEKS
     Route: 042
     Dates: start: 20200720
  4. INFLECTRA [Suspect]
     Active Substance: INFLIXIMAB-DYYB
     Dosage: 500 MG, EVERY 6 WEEKS
     Route: 042
     Dates: start: 20210222
  5. INFLECTRA [Suspect]
     Active Substance: INFLIXIMAB-DYYB
     Dosage: 500 MG, REINDUCTION: W0, W2, W6 AND THEN EVERY 8 WEEKS
     Route: 042
     Dates: start: 20230920
  6. INFLECTRA [Suspect]
     Active Substance: INFLIXIMAB-DYYB
     Dosage: 500 MG, REINDUCTION: W0, W2, W6 AND THEN EVERY 8 WEEKS
     Route: 042
     Dates: start: 20231004
  7. INFLECTRA [Suspect]
     Active Substance: INFLIXIMAB-DYYB
     Dosage: 500 MG, AFTER 4 WEEKS
     Route: 042
     Dates: start: 20231101
  8. INFLECTRA [Suspect]
     Active Substance: INFLIXIMAB-DYYB
     Dosage: 500 MG, AFTER 8 WEEKS AND 2 DAYS (SUPPOSED TO RECEIVE EVERY 6 WEEKS)
     Route: 042
     Dates: start: 20231229
  9. INFLECTRA [Suspect]
     Active Substance: INFLIXIMAB-DYYB
     Dosage: 500 MG, AFTER 11 WEEKS (SUPPOSED TO RECEIVE EVERY 6 WEEKS)
     Route: 042
     Dates: start: 20240315
  10. NEXIUM I.V. [Concomitant]
     Active Substance: ESOMEPRAZOLE SODIUM
     Dosage: UNK
  11. PREDNISONE [Concomitant]
     Active Substance: PREDNISONE
     Dosage: 40 MG, EVERY 2 WEEKS
  12. PREDNISONE [Concomitant]
     Active Substance: PREDNISONE
     Dosage: 15 MG
  13. PANTOPRAZOLE [Concomitant]
     Active Substance: PANTOPRAZOLE
     Dosage: UNK

REACTIONS (17)
  - Pneumonia [Recovering/Resolving]
  - Neuroendocrine tumour [Not Recovered/Not Resolved]
  - Neoplasm malignant [Not Recovered/Not Resolved]
  - Condition aggravated [Recovering/Resolving]
  - Fatigue [Unknown]
  - Groin pain [Unknown]
  - Abdominal pain [Unknown]
  - Incontinence [Unknown]
  - Gait disturbance [Unknown]
  - Fall [Unknown]
  - Asthenia [Unknown]
  - Dehydration [Unknown]
  - Feeding disorder [Unknown]
  - Nausea [Recovering/Resolving]
  - Off label use [Unknown]
  - Off label use [Unknown]
  - Intentional product use issue [Unknown]

NARRATIVE: CASE EVENT DATE: 20200703
